FAERS Safety Report 13698655 (Version 2)
Quarter: 2017Q3

REPORT INFORMATION
  Report Type: Spontaneous
  Country: US (occurrence: US)
  Receive Date: 20170628
  Receipt Date: 20170908
  Transmission Date: 20171127
  Serious: No
  Sender: FDA-Public Use
  Company Number: US-ACTELION-A-US2017-155971

PATIENT
  Age: 76 Year
  Sex: Female

DRUGS (14)
  1. CALCIUM ACETATE. [Concomitant]
     Active Substance: CALCIUM ACETATE
  2. GLIMEPIRIDE. [Concomitant]
     Active Substance: GLIMEPIRIDE
  3. METOPROLOL TARTATE HEXAL [Concomitant]
  4. HYDROCHLOROTHIAZIDE. [Concomitant]
     Active Substance: HYDROCHLOROTHIAZIDE
  5. METHOTREXATE. [Concomitant]
     Active Substance: METHOTREXATE
  6. LOSARTAN POTASSIUM. [Concomitant]
     Active Substance: LOSARTAN POTASSIUM
  7. DUREZOL [Concomitant]
     Active Substance: DIFLUPREDNATE
  8. ILEVRO [Concomitant]
     Active Substance: NEPAFENAC
  9. WARFARIN [Concomitant]
     Active Substance: WARFARIN
  10. VENTAVIS [Concomitant]
     Active Substance: ILOPROST
     Indication: PULMONARY ARTERIAL HYPERTENSION
  11. OPSUMIT [Suspect]
     Active Substance: MACITENTAN
     Indication: PULMONARY ARTERIAL HYPERTENSION
     Dosage: 10 MG, QD
     Route: 048
     Dates: start: 20160823
  12. METFORMIN [Concomitant]
     Active Substance: METFORMIN HYDROCHLORIDE
  13. MULTIVITAMIN [Concomitant]
     Active Substance: VITAMINS
  14. OFLOXACIN. [Concomitant]
     Active Substance: OFLOXACIN

REACTIONS (2)
  - Liver function test increased [Unknown]
  - Blood count abnormal [Unknown]
